FAERS Safety Report 6816578-4 (Version None)
Quarter: 2010Q3

REPORT INFORMATION
  Report Type: 
  Country: None (occurrence: None)
  Receive Date: 20100706
  Receipt Date: 20100625
  Transmission Date: 20110219
  Serious: Yes (Hospitalization)
  Sender: FDA-Public Use
  Company Number: PL-WYE-H15798210

PATIENT
  Sex: Male
  Weight: 80 kg

DRUGS (4)
  1. TEMSIROLIMUS [Suspect]
     Indication: RENAL CELL CARCINOMA
     Route: 042
     Dates: start: 20100406, end: 20100614
  2. PILOCARPINE HYDROCHLORIDE [Concomitant]
     Indication: GLAUCOMA
     Dosage: UNKNOWN
     Dates: start: 20000101
  3. LOPERAMIDE [Concomitant]
     Indication: DIARRHOEA
     Dosage: UNKNOWN
     Dates: start: 20100618
  4. BEVACIZUMAB [Suspect]
     Indication: RENAL CELL CARCINOMA
     Route: 042
     Dates: start: 20100406, end: 20100614

REACTIONS (1)
  - PERITONITIS [None]
